FAERS Safety Report 7931561-3 (Version None)
Quarter: 2011Q4

REPORT INFORMATION
  Report Type: 
  Country: None (occurrence: None)
  Receive Date: 20111121
  Receipt Date: 20111111
  Transmission Date: 20120403
  Serious: Yes (Other)
  Sender: FDA-Public Use
  Company Number: US-BAYER-2011-109501

PATIENT
  Age: 22 Year
  Sex: Female

DRUGS (1)
  1. MIRENA [Suspect]
     Indication: CONTRACEPTION
     Dosage: 20 ?G, CONT
     Route: 015
     Dates: start: 20100301, end: 20110301

REACTIONS (5)
  - DEVICE DISLOCATION [None]
  - DRUG ADMINISTRATION ERROR [None]
  - PELVIC INFLAMMATORY DISEASE [None]
  - INFERTILITY FEMALE [None]
  - ABDOMINAL PAIN [None]
